FAERS Safety Report 19832529 (Version 15)
Quarter: 2023Q1

REPORT INFORMATION
  Report Type: Report from Study
  Country: CA (occurrence: CA)
  Receive Date: 20210914
  Receipt Date: 20230103
  Transmission Date: 20230417
  Serious: Yes (Other)
  Sender: FDA-Public Use
  Company Number: CA-OTSUKA-2021_031368

PATIENT
  Age: 71 Year
  Sex: Female

DRUGS (2)
  1. CEDAZURIDINE\DECITABINE [Suspect]
     Active Substance: CEDAZURIDINE\DECITABINE
     Indication: Myelodysplastic syndrome
     Dosage: (35 MG DECITABINE AND 100 MG CEDAZURIDINE) (THREE TABLETS A MONTH)
     Route: 065
     Dates: start: 20210809
  2. CEDAZURIDINE\DECITABINE [Suspect]
     Active Substance: CEDAZURIDINE\DECITABINE
     Dosage: (35 MG DECITABINE AND 100 MG CEDAZURIDINE) (TWO TABLETS A MONTH)UNK
     Route: 065
     Dates: end: 20221228

REACTIONS (14)
  - Cerebrovascular accident [Unknown]
  - Transfusion [Unknown]
  - Full blood count decreased [Unknown]
  - Acute myeloid leukaemia [Unknown]
  - Platelet count decreased [Not Recovered/Not Resolved]
  - Pneumonia [Unknown]
  - Tooth abscess [Unknown]
  - Constipation [Recovered/Resolved]
  - Abdominal pain [Not Recovered/Not Resolved]
  - Weight decreased [Unknown]
  - Decreased appetite [Unknown]
  - Fatigue [Unknown]
  - Product use issue [Unknown]
  - Therapy interrupted [Unknown]

NARRATIVE: CASE EVENT DATE: 20210801
